FAERS Safety Report 13903487 (Version 20)
Quarter: 2022Q2

REPORT INFORMATION
  Report Type: Spontaneous
  Country: US (occurrence: US)
  Receive Date: 20170824
  Receipt Date: 20220429
  Transmission Date: 20220720
  Serious: No
  Sender: FDA-Public Use
  Company Number: US-PFIZER INC-2017366279

PATIENT
  Age: 80 Year
  Sex: Male
  Weight: 86 kg

DRUGS (17)
  1. LYRICA [Suspect]
     Active Substance: PREGABALIN
     Indication: Neuralgia
     Dosage: 150 MG, 2X/DAY
     Route: 048
     Dates: start: 2010, end: 2010
  2. LYRICA [Suspect]
     Active Substance: PREGABALIN
     Indication: Intervertebral disc disorder
     Dosage: 300 MG, (TWO TO THREE TIMES PER DAY MAY BE)
     Dates: start: 2010
  3. LYRICA [Suspect]
     Active Substance: PREGABALIN
     Indication: Radiculopathy
     Dosage: 150 MG, 2X/DAY (AT 3:30 PM AND OTHER CAPSULE BEFORE BED)
     Route: 048
     Dates: start: 2017
  4. LYRICA [Suspect]
     Active Substance: PREGABALIN
     Indication: Post laminectomy syndrome
     Dosage: 150 MG, 1X/DAY (IN THE MORNING)
     Route: 048
  5. LYRICA [Suspect]
     Active Substance: PREGABALIN
     Indication: Pain
     Dosage: 200 MG, 1X/DAY (AT NIGHT)
     Route: 048
  6. LYRICA [Suspect]
     Active Substance: PREGABALIN
     Indication: Arthropathy
     Dosage: 100 MG, UNK
  7. LYRICA [Suspect]
     Active Substance: PREGABALIN
     Indication: Polyneuropathy
     Dosage: 200 MG, 3X/DAY (1 CAPSULE THREE TIMES A DAY 30 DAYS)
     Route: 048
  8. LYRICA [Suspect]
     Active Substance: PREGABALIN
     Indication: Peripheral motor neuropathy
     Dosage: 150 MG, UNK
     Route: 048
  9. LYRICA [Suspect]
     Active Substance: PREGABALIN
     Dosage: UNK, DAILY (800MG - 900MG A DAY)
  10. LYRICA [Suspect]
     Active Substance: PREGABALIN
     Dosage: 200 MG, DAILY
     Route: 048
  11. METHADONE [Concomitant]
     Active Substance: METHADONE HYDROCHLORIDE
     Indication: Sleep disorder
     Dosage: 40 MG, 1X/DAY (AT NIGHT)
     Route: 048
     Dates: start: 1996
  12. METHADONE [Concomitant]
     Active Substance: METHADONE HYDROCHLORIDE
     Indication: Neuropathy peripheral
  13. AMITRIPTYLINE [Concomitant]
     Active Substance: AMITRIPTYLINE
     Dosage: UNK
     Dates: start: 2014
  14. LEVOTHYROXINE [Concomitant]
     Active Substance: LEVOTHYROXINE
     Indication: Thyroid disorder
     Dosage: 125 UG, DAILY
     Route: 048
  15. CYCLOBENZAPRINE HYDROCHLORIDE [Concomitant]
     Active Substance: CYCLOBENZAPRINE HYDROCHLORIDE
     Indication: Muscle spasms
     Dosage: 5 MG, 3X/DAY
     Route: 048
  16. OXYCODONE HYDROCHLORIDE [Concomitant]
     Active Substance: OXYCODONE HYDROCHLORIDE
     Indication: Pain
     Dosage: 5 MG, AS NEEDED (EVERY 6 HOURS)
  17. ELIQUIS [Concomitant]
     Active Substance: APIXABAN
     Indication: Atrial fibrillation
     Dosage: 5 MG, 2X/DAY
     Route: 048

REACTIONS (5)
  - Drug ineffective [Not Recovered/Not Resolved]
  - Overdose [Unknown]
  - Back disorder [Not Recovered/Not Resolved]
  - Drug hypersensitivity [Unknown]
  - Limb discomfort [Unknown]
